FAERS Safety Report 9699961 (Version 4)
Quarter: 2014Q1

REPORT INFORMATION
  Report Type: Spontaneous
  Country: US (occurrence: US)
  Receive Date: 20131121
  Receipt Date: 20140220
  Transmission Date: 20141002
  Serious: Yes (Hospitalization)
  Sender: FDA-Public Use
  Company Number: US-BIOGENIDEC-2013BI106960

PATIENT
  Age: 51 Year
  Sex: Female

DRUGS (17)
  1. TYSABRI [Suspect]
     Indication: MULTIPLE SCLEROSIS
     Route: 042
     Dates: start: 20080305, end: 20091229
  2. TYSABRI [Suspect]
     Indication: MULTIPLE SCLEROSIS
     Route: 042
     Dates: start: 20110817, end: 20130829
  3. WELLBUTRIN [Concomitant]
  4. PRIMIDONE [Concomitant]
  5. BACLOFEN [Concomitant]
  6. LORTAB [Concomitant]
  7. FIORINAL [Concomitant]
  8. LIDOCAINE [Concomitant]
  9. PRILOCAINE [Concomitant]
  10. XANAX [Concomitant]
  11. PHENERGEN [Concomitant]
  12. PAXIL [Concomitant]
  13. ESTRADIOL [Concomitant]
  14. ZANAFLEX [Concomitant]
  15. DOCUSTE SODIUM [Concomitant]
  16. VITAMIN B12 [Concomitant]
  17. RELPAX [Concomitant]

REACTIONS (4)
  - Pneumonia bacterial [Not Recovered/Not Resolved]
  - Respiratory failure [Recovered/Resolved]
  - Central nervous system lesion [Not Recovered/Not Resolved]
  - Dyspnoea [Recovered/Resolved]
